FAERS Safety Report 17213450 (Version 1)
Quarter: 2019Q4

REPORT INFORMATION
  Report Type: Spontaneous
  Country: FR (occurrence: FR)
  Receive Date: 20191230
  Receipt Date: 20191230
  Transmission Date: 20200122
  Serious: Yes (Death)
  Sender: FDA-Public Use
  Company Number: FR-ELI_LILLY_AND_COMPANY-FR201912013316

PATIENT
  Age: 70 Year
  Sex: Male
  Weight: 130 kg

DRUGS (6)
  1. PRASUGREL HYDROCHLORIDE [Suspect]
     Active Substance: PRASUGREL HYDROCHLORIDE
     Indication: MYOCARDIAL INFARCTION
     Dosage: 10 MG, DAILY
     Route: 048
     Dates: start: 20191116
  2. RAMIPRIL. [Suspect]
     Active Substance: RAMIPRIL
     Indication: MYOCARDIAL INFARCTION
     Dosage: 1.25 MG, DAILY
     Route: 048
     Dates: start: 20191116
  3. BISOPROLOL [Suspect]
     Active Substance: BISOPROLOL
     Indication: MYOCARDIAL INFARCTION
     Dosage: 2.5 MG, DAILY
     Route: 048
     Dates: start: 20191116
  4. ATORVASTATINE ACTAVIS [Suspect]
     Active Substance: ATORVASTATIN CALCIUM
     Indication: MYOCARDIAL INFARCTION
     Dosage: 80 MG, DAILY
     Route: 048
     Dates: start: 20191116, end: 20191205
  5. KARDEGIC [Suspect]
     Active Substance: ASPIRIN DL-LYSINE
     Indication: MYOCARDIAL INFARCTION
     Dosage: 75 MG, DAILY
     Route: 048
     Dates: start: 20191116
  6. NICOPATCH [Suspect]
     Active Substance: NICOTINE
     Indication: MYOCARDIAL INFARCTION
     Dosage: 1 DOSAGE FORM, DAILY
     Route: 062
     Dates: start: 20191116

REACTIONS (2)
  - Liver disorder [Fatal]
  - Rhabdomyolysis [Fatal]

NARRATIVE: CASE EVENT DATE: 20191204
